FAERS Safety Report 8477663-7 (Version None)
Quarter: 2012Q2

REPORT INFORMATION
  Report Type: 
  Country: None (occurrence: None)
  Receive Date: 20120629
  Receipt Date: 20120621
  Transmission Date: 20120825
  Serious: Yes (Hospitalization)
  Sender: FDA-Public Use
  Company Number: US-BAYER-2012-018737

PATIENT
  Age: 18 Year
  Sex: Female
  Weight: 67.392 kg

DRUGS (8)
  1. LEXAPRO [Concomitant]
     Dosage: 20 MG, DAILY
     Route: 048
  2. PROTONIX [Concomitant]
     Dosage: UNK UNK, DAILY
     Route: 048
  3. DROSPIRENONE AND ETHINYL ESTRADIOL [Suspect]
     Indication: CONTRACEPTION
     Dosage: UNK
     Dates: start: 20080709, end: 20091107
  4. VICODIN [Concomitant]
     Dosage: 5-500 MG, UNK
     Route: 048
     Dates: start: 20080418
  5. PROMETHAZINE [Concomitant]
     Dosage: 25 MG, UNK
     Route: 048
     Dates: start: 20080418
  6. YASMIN [Suspect]
     Indication: CONTRACEPTION
     Dosage: UNK
     Dates: start: 20080228, end: 20080613
  7. NEXIUM [Concomitant]
     Dosage: UNK
     Route: 048
  8. RANITIDINE [Concomitant]
     Dosage: 300 MG, UNK
     Route: 048
     Dates: start: 20080328

REACTIONS (8)
  - CHEST PAIN [None]
  - PAIN [None]
  - NAUSEA [None]
  - CHOLECYSTECTOMY [None]
  - BILE DUCT STONE [None]
  - ABDOMINAL PAIN UPPER [None]
  - CHOLECYSTITIS CHRONIC [None]
  - VOMITING [None]
